FAERS Safety Report 15943706 (Version 1)
Quarter: 2019Q1

REPORT INFORMATION
  Report Type: Spontaneous
  Country: FR (occurrence: FR)
  Receive Date: 20190210
  Receipt Date: 20190210
  Transmission Date: 20190417
  Serious: Yes (Hospitalization, Other)
  Sender: FDA-Public Use
  Company Number: FR-BRISTOL-MYERS SQUIBB COMPANY-BMS-2019-010549

PATIENT
  Age: 88 Year
  Sex: Female
  Weight: 50 kg

DRUGS (3)
  1. OFLOXACINE [Interacting]
     Active Substance: OFLOXACIN
     Indication: PYELONEPHRITIS
     Dosage: 400 MG PER DAY
     Route: 048
     Dates: start: 20181208, end: 20181221
  2. LORAMYC [Interacting]
     Active Substance: MICONAZOLE
     Indication: OROPHARYNGEAL CANDIDIASIS
     Route: 048
  3. COUMADINE [Suspect]
     Active Substance: WARFARIN SODIUM
     Indication: ARRHYTHMIA
     Route: 048

REACTIONS (3)
  - Drug interaction [Unknown]
  - Anaemia [Recovered/Resolved]
  - International normalised ratio increased [Recovered/Resolved]

NARRATIVE: CASE EVENT DATE: 20181215
